FAERS Safety Report 24207690 (Version 1)
Quarter: 2024Q3

REPORT INFORMATION
  Report Type: Report from Study
  Country: CA (occurrence: CA)
  Receive Date: 20240814
  Receipt Date: 20240814
  Transmission Date: 20241016
  Serious: No
  Sender: MIRUM PHARMACEUTICALS
  Company Number: CA-MIRUM PHARMACEUTICALS, INC.-CA-MIR-24-00603

PATIENT

DRUGS (1)
  1. LIVMARLI [Suspect]
     Active Substance: MARALIXIBAT CHLORIDE
     Indication: Alagille syndrome
     Dosage: 1.75 MILLILITER, QD
     Route: 048
     Dates: start: 20230830

REACTIONS (3)
  - Hepatic enzyme increased [Not Recovered/Not Resolved]
  - Thyroid hormones increased [Not Recovered/Not Resolved]
  - Prescribed underdose [Unknown]
